FAERS Safety Report 5910038-0 (Version None)
Quarter: 2008Q4

REPORT INFORMATION
  Report Type: 
  Country: None (occurrence: None)
  Receive Date: 20081007
  Receipt Date: 20070924
  Transmission Date: 20090506
  Serious: No
  Sender: FDA-Public Use
  Company Number: US-ASTRAZENECA-2007UW19093

PATIENT
  Age: 50 Year
  Sex: Female
  Weight: 58.1 kg

DRUGS (1)
  1. ARIMIDEX [Suspect]
     Indication: BREAST CANCER
     Route: 048
     Dates: start: 20070801

REACTIONS (3)
  - ARTHROPATHY [None]
  - BACK PAIN [None]
  - VISION BLURRED [None]
